FAERS Safety Report 12328134 (Version 1)
Quarter: 2016Q2

REPORT INFORMATION
  Report Type: Spontaneous
  Country: US (occurrence: US)
  Receive Date: 20160503
  Receipt Date: 20160503
  Transmission Date: 20160815
  Serious: Yes (Congenital Anomaly)
  Sender: FDA-Public Use
  Company Number: US-EMD SERONO-7047158

PATIENT
  Age: 3 Year
  Sex: Female
  Weight: 17 kg

DRUGS (6)
  1. SAIZEN [Suspect]
     Active Substance: SOMATROPIN
     Route: 058
  2. MULTIVITAMIN                       /00097801/ [Concomitant]
     Active Substance: VITAMINS
     Indication: PRODUCT USED FOR UNKNOWN INDICATION
     Route: 048
  3. HYDROCORTISONE. [Concomitant]
     Active Substance: HYDROCORTISONE
     Indication: PRODUCT USED FOR UNKNOWN INDICATION
     Dosage: 2.5 % APPLYING ON AFFECTED AREA
  4. SAIZEN [Suspect]
     Active Substance: SOMATROPIN
     Indication: TURNER^S SYNDROME
     Route: 058
     Dates: start: 20100929, end: 201103
  5. SAIZEN [Suspect]
     Active Substance: SOMATROPIN
     Route: 058
     Dates: start: 201104
  6. SAIZEN [Suspect]
     Active Substance: SOMATROPIN
     Route: 058

REACTIONS (4)
  - Urinary tract infection [Not Recovered/Not Resolved]
  - Hydronephrosis [Not Recovered/Not Resolved]
  - Bone pain [Unknown]
  - Renal fusion anomaly [Not Recovered/Not Resolved]

NARRATIVE: CASE EVENT DATE: 20111024
